FAERS Safety Report 7807917-6 (Version None)
Quarter: 2011Q4

REPORT INFORMATION
  Report Type: 
  Country: None (occurrence: None)
  Receive Date: 20111011
  Receipt Date: 20111011
  Transmission Date: 20120403
  Serious: Yes (Life-Threatening)
  Sender: FDA-Public Use
  Company Number: None

PATIENT
  Age: 48 Year
  Sex: Female
  Weight: 81.646 kg

DRUGS (1)
  1. LUNESTA [Suspect]
     Dates: start: 20110801, end: 20111007

REACTIONS (6)
  - AGGRESSION [None]
  - HYPERSOMNIA [None]
  - ATTENTION-SEEKING BEHAVIOUR [None]
  - ALCOHOL USE [None]
  - AGITATION [None]
  - LIBIDO INCREASED [None]
